FAERS Safety Report 18628680 (Version 1)
Quarter: 2020Q4

REPORT INFORMATION
  Report Type: Spontaneous
  Country: US (occurrence: US)
  Receive Date: 20201217
  Receipt Date: 20201217
  Transmission Date: 20210114
  Serious: Yes (Other)
  Sender: FDA-Public Use
  Company Number: US-009507513-2012USA003860

PATIENT
  Age: 20 Year
  Sex: Female
  Weight: 47.62 kg

DRUGS (2)
  1. RIFAMPIN. [Suspect]
     Active Substance: RIFAMPIN
     Indication: LATENT TUBERCULOSIS
     Dosage: 600 MILLIGRAM, QD (FOR 04 MONTHS)
     Dates: start: 20200306, end: 202007
  2. NEXPLANON [Suspect]
     Active Substance: ETONOGESTREL
     Indication: CONTRACEPTION
     Dosage: 1 IMPLANT
     Route: 059
     Dates: start: 20190517

REACTIONS (4)
  - Labelled drug-drug interaction issue [Unknown]
  - Weight increased [Unknown]
  - Unintended pregnancy [Not Recovered/Not Resolved]
  - Pregnancy with implant contraceptive [Not Recovered/Not Resolved]

NARRATIVE: CASE EVENT DATE: 2020
